FAERS Safety Report 5313410-5 (Version None)
Quarter: 2007Q2

REPORT INFORMATION
  Report Type: 
  Country: None (occurrence: None)
  Receive Date: 20070501
  Receipt Date: 20070425
  Transmission Date: 20071010
  Serious: Yes (Life-Threatening, Hospitalization)
  Sender: FDA-Public Use
  Company Number: FR-NOVOPROD-263164

PATIENT
  Age: 73 Year
  Sex: Female

DRUGS (5)
  1. ACTRAPID [Suspect]
     Indication: DIABETES MELLITUS
     Dosage: 1 DF, QD
     Route: 058
     Dates: end: 20070325
  2. NOVOLOG MIX 70/30 [Suspect]
     Indication: DIABETES MELLITUS
     Dosage: 2 DF, QD
     Route: 058
     Dates: end: 20070325
  3. LYRICA [Concomitant]
     Dosage: 2 DF, QD
     Route: 048
     Dates: end: 20070325
  4. PROPRANOLOL [Concomitant]
     Dosage: 40 MG, QD
     Route: 048
     Dates: end: 20070325
  5. FUROSEMIDE [Concomitant]
     Route: 048
     Dates: end: 20070325

REACTIONS (2)
  - HYPOGLYCAEMIC COMA [None]
  - STATUS EPILEPTICUS [None]
